FAERS Safety Report 7979255-2 (Version None)
Quarter: 2011Q4

REPORT INFORMATION
  Report Type: 
  Country: None (occurrence: None)
  Receive Date: 20111214
  Receipt Date: 20111214
  Transmission Date: 20120403
  Serious: No
  Sender: FDA-Public Use
  Company Number: None

PATIENT
  Age: 28 Year
  Sex: Female
  Weight: 58.967 kg

DRUGS (1)
  1. ESCITALOPRAM [Suspect]
     Indication: DEPRESSION
     Dosage: 40 MG
     Route: 048
     Dates: start: 20090124, end: 20111211

REACTIONS (3)
  - CONGENITAL AORTIC ANOMALY [None]
  - TRANSPOSITION OF THE GREAT VESSELS [None]
  - MATERNAL DRUGS AFFECTING FOETUS [None]
